FAERS Safety Report 17333438 (Version 6)
Quarter: 2020Q2

REPORT INFORMATION
  Report Type: Spontaneous
  Country: JP (occurrence: JP)
  Receive Date: 20200128
  Receipt Date: 20200424
  Transmission Date: 20200713
  Serious: Yes (Hospitalization)
  Sender: FDA-Public Use
  Company Number: JP-ROCHE-2534467

PATIENT
  Age: 8 Year
  Sex: Female

DRUGS (11)
  1. XOLAIR [Suspect]
     Active Substance: OMALIZUMAB
     Indication: ASTHMA
     Dosage: 225 MG
     Route: 058
     Dates: start: 20190731
  2. XOLAIR [Suspect]
     Active Substance: OMALIZUMAB
     Dosage: UNK
     Route: 058
  3. CLARITIN [Concomitant]
     Active Substance: LORATADINE
     Indication: PRODUCT USED FOR UNKNOWN INDICATION
     Dosage: 10 MG
     Route: 065
     Dates: start: 20200115
  4. XOLAIR [Suspect]
     Active Substance: OMALIZUMAB
     Dosage: UNK
     Route: 058
  5. SAXIZON [Concomitant]
     Active Substance: HYDROCORTISONE SODIUM SUCCINATE
     Indication: PRODUCT USED FOR UNKNOWN INDICATION
     Dosage: 200 MG
     Route: 041
     Dates: start: 20200115
  6. XOLAIR [Suspect]
     Active Substance: OMALIZUMAB
     Dosage: 225 MG
     Route: 058
     Dates: start: 20200115
  7. XOLAIR [Suspect]
     Active Substance: OMALIZUMAB
     Dosage: UNK
     Route: 058
  8. XYZAL [Concomitant]
     Active Substance: LEVOCETIRIZINE DIHYDROCHLORIDE
     Indication: ASTHMA
     Dosage: 2.5 MG
     Route: 048
  9. XOLAIR [Suspect]
     Active Substance: OMALIZUMAB
     Dosage: UNK
     Route: 058
  10. ONON [Concomitant]
     Active Substance: PRANLUKAST
     Indication: ASTHMA
     Dosage: 0.85 G
     Route: 048
  11. ADOAIR [Concomitant]
     Active Substance: FLUTICASONE PROPIONATE\SALMETEROL XINAFOATE
     Indication: ASTHMA
     Dosage: 250 UL
     Route: 065
     Dates: start: 20181031

REACTIONS (13)
  - Eye colour change [Recovered/Resolved]
  - Pruritus [Unknown]
  - Anaphylactoid reaction [Recovered/Resolved]
  - Blood pressure decreased [Recovered/Resolved]
  - Eye swelling [Recovered/Resolved]
  - Abdominal pain [Unknown]
  - Eye pruritus [Recovered/Resolved]
  - Somnolence [Recovered/Resolved]
  - Urticaria [Recovered/Resolved]
  - Pallor [Recovered/Resolved]
  - Malaise [Recovered/Resolved]
  - Performance status decreased [Recovering/Resolving]
  - Wheezing [Recovering/Resolving]

NARRATIVE: CASE EVENT DATE: 20190731
